FAERS Safety Report 24452512 (Version 1)
Quarter: 2024Q4

REPORT INFORMATION
  Report Type: Spontaneous
  Country: US (occurrence: US)
  Receive Date: 20241017
  Receipt Date: 20241017
  Transmission Date: 20250114
  Serious: Yes (Other)
  Sender: SUNOVION
  Company Number: US-UROVANT SCIENCES GMBH-202403-URV-000369

PATIENT
  Sex: Female
  Weight: 70.295 kg

DRUGS (1)
  1. GEMTESA [Suspect]
     Active Substance: VIBEGRON
     Indication: Hypertonic bladder
     Dosage: 75 MG, QD
     Route: 048
     Dates: start: 20240228, end: 20240318

REACTIONS (5)
  - Urinary retention [Not Recovered/Not Resolved]
  - Dizziness [Recovering/Resolving]
  - Bladder pain [Not Recovered/Not Resolved]
  - Drug ineffective [Unknown]
  - Product dispensing error [Unknown]
